FAERS Safety Report 4346686-1 (Version None)
Quarter: 2004Q2

REPORT INFORMATION
  Report Type: 
  Country: None (occurrence: None)
  Receive Date: 20040426
  Receipt Date: 20040422
  Transmission Date: 20050107
  Serious: Yes (Other)
  Sender: FDA-Public Use
  Company Number: JP-ROCHE-365066

PATIENT
  Age: 66 Year
  Sex: Male

DRUGS (3)
  1. PANALDINE [Suspect]
     Indication: PROPHYLAXIS
     Dosage: INDICATION REPORTED AS PROPHYLAXIS OF RESTENOSIS AFTER STENTING DUE TO AMI.
     Route: 048
     Dates: start: 20040301, end: 20040401
  2. CRAVIT [Suspect]
     Indication: CYSTITIS
     Route: 048
     Dates: start: 20040307
  3. HEPARIN [Concomitant]
     Indication: DRUG USE FOR UNKNOWN INDICATION

REACTIONS (4)
  - C-REACTIVE PROTEIN INCREASED [None]
  - HAEMOLYTIC URAEMIC SYNDROME [None]
  - MYOCARDIAL INFARCTION [None]
  - PYREXIA [None]
